FAERS Safety Report 6357336-7 (Version None)
Quarter: 2009Q3

REPORT INFORMATION
  Report Type: 
  Country: None (occurrence: None)
  Receive Date: 20090916
  Receipt Date: 20090914
  Transmission Date: 20100115
  Serious: Yes (Other)
  Sender: FDA-Public Use
  Company Number: US-BIOGENIDEC-2009BI003965

PATIENT
  Age: 26 Year
  Sex: Female
  Weight: 47 kg

DRUGS (3)
  1. TYSABRI [Suspect]
     Indication: MULTIPLE SCLEROSIS
     Route: 042
     Dates: start: 20081215
  2. DEPO-PROVERA [Concomitant]
     Indication: CONTRACEPTION
  3. BENADRYL [Concomitant]
     Indication: DIZZINESS
     Route: 048
     Dates: start: 20090201

REACTIONS (10)
  - BLOOD URINE PRESENT [None]
  - CONTUSION [None]
  - DEPRESSION [None]
  - DIZZINESS [None]
  - FALL [None]
  - HAEMATOCHEZIA [None]
  - MOBILITY DECREASED [None]
  - OEDEMA PERIPHERAL [None]
  - PHARYNGEAL HAEMORRHAGE [None]
  - SENSATION OF HEAVINESS [None]
